FAERS Safety Report 20816853 (Version 1)
Quarter: 2022Q2

REPORT INFORMATION
  Report Type: Spontaneous
  Country: JP (occurrence: JP)
  Receive Date: 20220512
  Receipt Date: 20220512
  Transmission Date: 20220721
  Serious: Yes (Hospitalization)
  Sender: FDA-Public Use
  Company Number: JP-SETONPHARMA-2022SETSPO00002

PATIENT
  Age: 47 Year
  Sex: Male
  Weight: 74.2 kg

DRUGS (34)
  1. PREDNISOLONE [Suspect]
     Active Substance: PREDNISOLONE
     Indication: Dermatitis atopic
     Route: 061
     Dates: start: 20190201, end: 20190207
  2. PREDNISOLONE [Suspect]
     Active Substance: PREDNISOLONE
     Route: 061
     Dates: start: 20190419, end: 20190425
  3. PREDNISOLONE [Suspect]
     Active Substance: PREDNISOLONE
     Route: 061
     Dates: start: 20190604, end: 20190610
  4. PREDNISOLONE [Suspect]
     Active Substance: PREDNISOLONE
     Route: 061
     Dates: start: 20190801, end: 20190807
  5. PREDNISOLONE [Suspect]
     Active Substance: PREDNISOLONE
     Route: 061
     Dates: start: 20191120, end: 20191126
  6. PREDNISOLONE [Suspect]
     Active Substance: PREDNISOLONE
     Route: 061
     Dates: start: 20191205, end: 20191211
  7. PREDNISOLONE [Suspect]
     Active Substance: PREDNISOLONE
     Route: 061
     Dates: start: 20191216, end: 20191220
  8. PREDNISOLONE [Suspect]
     Active Substance: PREDNISOLONE
     Route: 061
     Dates: start: 20191230, end: 20200103
  9. FLUOCINOLONE ACETONIDE [Suspect]
     Active Substance: FLUOCINOLONE ACETONIDE
     Indication: Dermatitis atopic
     Route: 061
     Dates: start: 20190125, end: 20190131
  10. FLUOCINOLONE ACETONIDE [Suspect]
     Active Substance: FLUOCINOLONE ACETONIDE
     Route: 061
     Dates: start: 20190329, end: 20190418
  11. FLUOCINOLONE ACETONIDE [Suspect]
     Active Substance: FLUOCINOLONE ACETONIDE
     Route: 061
     Dates: start: 20190514, end: 20190603
  12. FLUOCINOLONE ACETONIDE [Suspect]
     Active Substance: FLUOCINOLONE ACETONIDE
     Route: 061
     Dates: start: 20190711, end: 20190731
  13. FLUOCINOLONE ACETONIDE [Suspect]
     Active Substance: FLUOCINOLONE ACETONIDE
     Route: 061
     Dates: start: 20191030, end: 20191119
  14. FLUOCINOLONE ACETONIDE [Suspect]
     Active Substance: FLUOCINOLONE ACETONIDE
     Route: 061
     Dates: start: 20191127, end: 20191204
  15. FLUOCINOLONE ACETONIDE [Suspect]
     Active Substance: FLUOCINOLONE ACETONIDE
     Route: 061
     Dates: start: 20191212, end: 20191215
  16. FLUOCINOLONE ACETONIDE [Suspect]
     Active Substance: FLUOCINOLONE ACETONIDE
     Route: 061
     Dates: start: 20191221, end: 20191229
  17. FLUOCINOLONE ACETONIDE [Suspect]
     Active Substance: FLUOCINOLONE ACETONIDE
     Route: 061
     Dates: start: 20200104, end: 20200121
  18. UPADACITINIB [Suspect]
     Active Substance: UPADACITINIB
     Route: 048
     Dates: start: 20190125, end: 20211217
  19. UPADACITINIB [Suspect]
     Active Substance: UPADACITINIB
     Route: 048
     Dates: start: 20211230
  20. LOCOID [Concomitant]
     Active Substance: HYDROCORTISONE BUTYRATE
     Indication: Dermatitis atopic
     Route: 061
     Dates: start: 20130307, end: 20190117
  21. LOCOID [Concomitant]
     Active Substance: HYDROCORTISONE BUTYRATE
     Route: 061
     Dates: start: 20120910, end: 20130729
  22. LOCOID [Concomitant]
     Active Substance: HYDROCORTISONE BUTYRATE
     Route: 061
     Dates: start: 20080313, end: 20111114
  23. LOCOID [Concomitant]
     Active Substance: HYDROCORTISONE BUTYRATE
     Route: 061
     Dates: start: 20051116, end: 20051207
  24. LOCOID [Concomitant]
     Active Substance: HYDROCORTISONE BUTYRATE
     Route: 061
     Dates: start: 20200121
  25. BETAMETHASONE BUTYRATE PROPIONATE [Concomitant]
     Active Substance: BETAMETHASONE BUTYRATE PROPIONATE
     Indication: Dermatitis atopic
     Route: 061
     Dates: start: 20040527, end: 20051115
  26. BETAMETHASONE BUTYRATE PROPIONATE [Concomitant]
     Active Substance: BETAMETHASONE BUTYRATE PROPIONATE
     Route: 061
     Dates: start: 20120508, end: 20160426
  27. BETAMETHASONE BUTYRATE PROPIONATE [Concomitant]
     Active Substance: BETAMETHASONE BUTYRATE PROPIONATE
     Route: 061
     Dates: start: 20181210, end: 20190117
  28. BETAMETHASONE BUTYRATE PROPIONATE [Concomitant]
     Active Substance: BETAMETHASONE BUTYRATE PROPIONATE
     Route: 061
     Dates: start: 20200414
  29. PETROLATUM [Concomitant]
     Active Substance: PETROLATUM
     Indication: Toxicity to various agents
     Route: 061
     Dates: start: 20190118
  30. COSOPT [Concomitant]
     Active Substance: DORZOLAMIDE HYDROCHLORIDE\TIMOLOL MALEATE
     Indication: Intraocular pressure test
     Route: 061
     Dates: start: 20181219, end: 20181220
  31. COSOPT [Concomitant]
     Active Substance: DORZOLAMIDE HYDROCHLORIDE\TIMOLOL MALEATE
     Route: 061
     Dates: start: 20190409, end: 20190513
  32. COSOPT [Concomitant]
     Active Substance: DORZOLAMIDE HYDROCHLORIDE\TIMOLOL MALEATE
     Route: 061
     Dates: start: 20191028, end: 20191028
  33. COSOPT [Concomitant]
     Active Substance: DORZOLAMIDE HYDROCHLORIDE\TIMOLOL MALEATE
     Route: 061
     Dates: start: 20200512, end: 20211224
  34. TAFLUPROST [Concomitant]
     Active Substance: TAFLUPROST
     Indication: Intraocular pressure test
     Route: 047
     Dates: start: 20201101, end: 20211223

REACTIONS (1)
  - Glaucoma [Not Recovered/Not Resolved]

NARRATIVE: CASE EVENT DATE: 20211108
